FAERS Safety Report 6215949-7 (Version None)
Quarter: 2009Q2

REPORT INFORMATION
  Report Type: 
  Country: None (occurrence: None)
  Receive Date: 20090605
  Receipt Date: 20090529
  Transmission Date: 20091009
  Serious: Yes (Other)
  Sender: FDA-Public Use
  Company Number: US-JNJFOC-20090406427

PATIENT
  Sex: Male

DRUGS (2)
  1. CONCENTRATED MOTRIN INFANTS [Suspect]
     Route: 048
  2. CONCENTRATED MOTRIN INFANTS [Suspect]
     Indication: MYALGIA
     Route: 048

REACTIONS (4)
  - CHOKING [None]
  - LISTLESS [None]
  - PALLOR [None]
  - RESPIRATORY ARREST [None]
